FAERS Safety Report 9387026 (Version 1)
Quarter: 2013Q3

REPORT INFORMATION
  Report Type: Spontaneous
  Country: US (occurrence: US)
  Receive Date: 20130708
  Receipt Date: 20130708
  Transmission Date: 20140515
  Serious: No
  Sender: FDA-Public Use
  Company Number: US-ELI_LILLY_AND_COMPANY-US201307000950

PATIENT
  Age: 56 Year
  Sex: Male

DRUGS (6)
  1. CIALIS [Suspect]
     Indication: PROSTATECTOMY
     Dosage: 5 MG, QD
     Dates: start: 201305, end: 20130612
  2. CIALIS [Suspect]
     Dosage: 5 MG, QD
     Dates: start: 20130614, end: 20130627
  3. PRISTIQ [Concomitant]
     Dosage: 1 DF, UNKNOWN
  4. ROPINIROLE [Concomitant]
     Dosage: 1 DF, UNKNOWN
  5. GABAPENTIN [Concomitant]
     Dosage: 1 DF, UNKNOWN
  6. HYDROCHOROTHIAZIDE [Concomitant]
     Dosage: 1 DF, UNKNOWN

REACTIONS (1)
  - Haemorrhoids [Unknown]
